FAERS Safety Report 8243358-8 (Version None)
Quarter: 2012Q1

REPORT INFORMATION
  Report Type: 
  Country: None (occurrence: None)
  Receive Date: 20120329
  Receipt Date: 20120319
  Transmission Date: 20120608
  Serious: Yes (Other)
  Sender: FDA-Public Use
  Company Number: GR-ROCHE-1051403

PATIENT

DRUGS (2)
  1. XELODA [Suspect]
     Indication: BREAST CANCER METASTATIC
     Dosage: STARTING DOSE 800 MG/M2 BID ON DAYS 1-14, EVERY 21 DAYS, THEN ESCALATED
     Route: 048
  2. VINORELBINE TARTRATE [Suspect]
     Indication: BREAST CANCER METASTATIC
     Dosage: STARTING DOSE OF 30 MG WITH INCREMENTS OF 10 MG
     Route: 048

REACTIONS (9)
  - FEBRILE NEUTROPENIA [None]
  - NAUSEA [None]
  - ANAEMIA [None]
  - VOMITING [None]
  - NEUROTOXICITY [None]
  - PALMAR-PLANTAR ERYTHRODYSAESTHESIA SYNDROME [None]
  - NEUTROPENIA [None]
  - FATIGUE [None]
  - DIARRHOEA [None]
